FAERS Safety Report 20510122 (Version 2)
Quarter: 2022Q2

REPORT INFORMATION
  Report Type: Other
  Country: US (occurrence: None)
  Receive Date: 20220224
  Receipt Date: 20220403
  Transmission Date: 20220720
  Serious: Yes (Hospitalization)
  Sender: FDA-Public Use
  Company Number: US-ROCHE-3025060

PATIENT
  Age: 67 Year
  Sex: Female

DRUGS (16)
  1. OCRELIZUMAB [Suspect]
     Active Substance: OCRELIZUMAB
     Indication: Multiple sclerosis
     Dosage: 1ST DOSE OF 600 MGS EVERY 6 MONTHS SO HAD TO BE SPLIT BETWEEN 2 DOSES. DATE OF FIRST ADMINISTRATION
     Route: 042
     Dates: start: 20201223, end: 20211223
  2. OCRELIZUMAB [Suspect]
     Active Substance: OCRELIZUMAB
     Route: 042
     Dates: start: 20201223, end: 20211223
  3. OCRELIZUMAB [Suspect]
     Active Substance: OCRELIZUMAB
     Dosage: OTHER, SPECIFY: 1ST DOSE HAD TO BE SPLIT
     Route: 042
     Dates: start: 20210107, end: 20210107
  4. OCRELIZUMAB [Suspect]
     Active Substance: OCRELIZUMAB
     Route: 042
     Dates: start: 20210707, end: 20211207
  5. OCRELIZUMAB [Suspect]
     Active Substance: OCRELIZUMAB
     Route: 042
     Dates: start: 20220210, end: 20220210
  6. AUBAGIO [Concomitant]
     Active Substance: TERIFLUNOMIDE
     Indication: Multiple sclerosis
     Dates: start: 2014
  7. AUBAGIO [Concomitant]
     Active Substance: TERIFLUNOMIDE
     Dates: start: 20150609, end: 20201120
  8. LEVOTHYROXINE SODIUM [Concomitant]
     Active Substance: LEVOTHYROXINE SODIUM
     Dates: start: 2015
  9. TOPROL XL [Concomitant]
     Active Substance: METOPROLOL SUCCINATE
     Dates: start: 2019
  10. ASPIRIN [Concomitant]
     Active Substance: ASPIRIN
     Dates: start: 2007
  11. BUMEX [Concomitant]
     Active Substance: BUMETANIDE
     Dates: start: 2013
  12. LISINOPRIL [Concomitant]
     Active Substance: LISINOPRIL
     Dates: start: 2006
  13. LUNESTA [Concomitant]
     Active Substance: ESZOPICLONE
     Dates: start: 2018
  14. CALCIUM [Concomitant]
     Active Substance: CALCIUM
     Dates: start: 2015
  15. METFORMIN HYDROCHLORIDE [Concomitant]
     Active Substance: METFORMIN HYDROCHLORIDE
     Dates: start: 2008
  16. CRESTOR [Concomitant]
     Active Substance: ROSUVASTATIN CALCIUM
     Dates: start: 2010

REACTIONS (1)
  - Cellulitis [Recovered/Resolved]

NARRATIVE: CASE EVENT DATE: 20211216
